FAERS Safety Report 11311752 (Version 2)
Quarter: 2015Q3

REPORT INFORMATION
  Report Type: Spontaneous
  Country: FR (occurrence: FR)
  Receive Date: 20150727
  Receipt Date: 20150918
  Transmission Date: 20151125
  Serious: Yes (Hospitalization)
  Sender: FDA-Public Use
  Company Number: FR-SA-2015SA106960

PATIENT
  Age: 77 Year
  Sex: Male

DRUGS (12)
  1. SOTALEX [Suspect]
     Active Substance: SOTALOL
     Route: 048
     Dates: end: 20150218
  2. PREVISCAN [Concomitant]
     Active Substance: FLUINDIONE
     Route: 065
     Dates: end: 20150127
  3. DOLIPRANE [Concomitant]
     Active Substance: ACETAMINOPHEN
     Dosage: IF NEEDED 2 DF, 3 IN 1 DAY.
     Route: 065
     Dates: end: 20150128
  4. STILNOX [Suspect]
     Active Substance: ZOLPIDEM TARTRATE
     Route: 048
     Dates: end: 20150218
  5. NOCTAMIDE [Suspect]
     Active Substance: LORMETAZEPAM
     Route: 048
     Dates: start: 20141212, end: 20150218
  6. NEULEPTIL [Suspect]
     Active Substance: PERICIAZINE
     Route: 048
     Dates: end: 20150209
  7. LYRICA [Suspect]
     Active Substance: PREGABALIN
     Route: 048
     Dates: end: 20150129
  8. SERESTA [Suspect]
     Active Substance: OXAZEPAM
     Route: 048
     Dates: end: 20150218
  9. IMODIUM [Suspect]
     Active Substance: LOPERAMIDE HYDROCHLORIDE
     Route: 048
     Dates: start: 20150113, end: 20150115
  10. LOXAPAC [Suspect]
     Active Substance: LOXAPINE SUCCINATE
     Route: 030
     Dates: end: 20150218
  11. TEGRETOL [Suspect]
     Active Substance: CARBAMAZEPINE
     Route: 048
     Dates: end: 20150218
  12. GLUCOPHAGE [Suspect]
     Active Substance: METFORMIN HYDROCHLORIDE
     Route: 048
     Dates: end: 20150126

REACTIONS (2)
  - Fall [Recovered/Resolved]
  - Hypotension [Recovered/Resolved]

NARRATIVE: CASE EVENT DATE: 20150217
